FAERS Safety Report 6500227-9 (Version None)
Quarter: 2009Q4

REPORT INFORMATION
  Report Type: 
  Country: None (occurrence: None)
  Receive Date: 20091216
  Receipt Date: 20091209
  Transmission Date: 20100525
  Serious: Yes (Other)
  Sender: FDA-Public Use
  Company Number: JP-PFIZER INC-2009300485

PATIENT
  Age: 73 Year
  Sex: Female

DRUGS (5)
  1. NORVASC [Suspect]
     Dosage: 5 MG, 1X/DAY
  2. ALENDRONATE SODIUM [Concomitant]
     Route: 048
  3. ASPARA-CA [Concomitant]
     Route: 048
  4. ONE-ALPHA [Concomitant]
     Route: 048
  5. MAG-LAX [Concomitant]
     Route: 048

REACTIONS (1)
  - PARKINSONISM [None]
